FAERS Safety Report 8123868-4 (Version None)
Quarter: 2012Q1

REPORT INFORMATION
  Report Type: 
  Country: None (occurrence: None)
  Receive Date: 20120209
  Receipt Date: 20120131
  Transmission Date: 20120608
  Serious: Yes (Hospitalization)
  Sender: FDA-Public Use
  Company Number: US-BIOGENIDEC-2011BI036792

PATIENT
  Sex: Male

DRUGS (1)
  1. AVONEX [Suspect]
     Indication: MULTIPLE SCLEROSIS
     Route: 030
     Dates: start: 20101004

REACTIONS (8)
  - HYPOTENSION [None]
  - ARRHYTHMIA [None]
  - HEPATIC NEOPLASM MALIGNANT [None]
  - PROSTATIC DISORDER [None]
  - FALL [None]
  - CARDIAC DISORDER [None]
  - POST PROCEDURAL SEPSIS [None]
  - CYSTITIS [None]
